FAERS Safety Report 13065269 (Version 1)
Quarter: 2016Q4

REPORT INFORMATION
  Report Type: Spontaneous
  Country: GB (occurrence: GB)
  Receive Date: 20161227
  Receipt Date: 20161227
  Transmission Date: 20170207
  Serious: Yes (Death, Other)
  Sender: FDA-Public Use
  Company Number: GB-PFIZER INC-2016562370

PATIENT
  Age: 65 Year
  Sex: Male
  Weight: 75 kg

DRUGS (4)
  1. XALKORI [Suspect]
     Active Substance: CRIZOTINIB
     Indication: LUNG NEOPLASM MALIGNANT
  2. DEXAMETHASONE. [Concomitant]
     Active Substance: DEXAMETHASONE
     Indication: PAIN
     Route: 048
  3. MORPHINE [Concomitant]
     Active Substance: MORPHINE
     Indication: CARDIAC FAILURE
     Route: 048
  4. FUROSEMIDE. [Concomitant]
     Active Substance: FUROSEMIDE
     Indication: CHRONIC OBSTRUCTIVE PULMONARY DISEASE
     Route: 048

REACTIONS (4)
  - Cardiac failure [Unknown]
  - Asthenia [Unknown]
  - Neoplasm progression [Fatal]
  - Pneumonia [Unknown]

NARRATIVE: CASE EVENT DATE: 20161115
